FAERS Safety Report 15105925 (Version 3)
Quarter: 2018Q3

REPORT INFORMATION
  Report Type: Report from Study
  Country: CA (occurrence: CA)
  Receive Date: 20180704
  Receipt Date: 20180725
  Transmission Date: 20181010
  Serious: Yes (Death, Hospitalization, Other)
  Sender: FDA-Public Use
  Company Number: CA-ROCHE-1943237

PATIENT
  Age: 74 Year
  Sex: Male
  Weight: 71.8 kg

DRUGS (15)
  1. ESBRIET [Suspect]
     Active Substance: PIRFENIDONE
     Route: 048
     Dates: start: 20170516, end: 20170707
  2. METFORMIN [Concomitant]
     Active Substance: METFORMIN HYDROCHLORIDE
  3. ESBRIET [Suspect]
     Active Substance: PIRFENIDONE
     Route: 048
  4. VENTOLIN [Concomitant]
     Active Substance: ALBUTEROL SULFATE
  5. ESBRIET [Suspect]
     Active Substance: PIRFENIDONE
     Indication: IDIOPATHIC PULMONARY FIBROSIS
     Route: 048
     Dates: start: 20170429
  6. SALBUTAMOL [Concomitant]
     Active Substance: ALBUTEROL
  7. NASONEX [Concomitant]
     Active Substance: MOMETASONE FUROATE
  8. AMLODIPINE [Concomitant]
     Active Substance: AMLODIPINE BESYLATE
  9. DUTASTERIDE. [Concomitant]
     Active Substance: DUTASTERIDE
  10. SPIRIVA [Concomitant]
     Active Substance: TIOTROPIUM BROMIDE MONOHYDRATE
  11. RAMIPRIL. [Concomitant]
     Active Substance: RAMIPRIL
  12. ZENHALE [Concomitant]
     Active Substance: FORMOTEROL FUMARATE\MOMETASONE FUROATE
  13. ESBRIET [Suspect]
     Active Substance: PIRFENIDONE
     Route: 048
     Dates: start: 20170913
  14. TAMSULOSIN [Concomitant]
     Active Substance: TAMSULOSIN
  15. SYMBICORT [Concomitant]
     Active Substance: BUDESONIDE\FORMOTEROL FUMARATE DIHYDRATE

REACTIONS (7)
  - Asthenia [Not Recovered/Not Resolved]
  - Dyspnoea [Fatal]
  - Decreased appetite [Not Recovered/Not Resolved]
  - Chronic obstructive pulmonary disease [Fatal]
  - Weight decreased [Unknown]
  - Nausea [Unknown]
  - Lung infection [Unknown]

NARRATIVE: CASE EVENT DATE: 201705
